FAERS Safety Report 11401425 (Version 1)
Quarter: 2015Q3

REPORT INFORMATION
  Report Type: Report from Study
  Country: BR (occurrence: BR)
  Receive Date: 20150820
  Receipt Date: 20150820
  Transmission Date: 20151125
  Serious: Yes (Other)
  Sender: FDA-Public Use
  Company Number: BR-EMD SERONO-8038620

PATIENT
  Sex: Female
  Weight: 78 kg

DRUGS (4)
  1. PURAN [Concomitant]
     Active Substance: LEVOTHYROXINE SODIUM
     Indication: HYPOTHYROIDISM
     Dosage: STARTED LONG TIME AGO
  2. REBIF [Suspect]
     Active Substance: INTERFERON BETA-1A
     Dosage: RESUMED
  3. NAPROXEN. [Concomitant]
     Active Substance: NAPROXEN
     Indication: PRODUCT USED FOR UNKNOWN INDICATION
  4. REBIF [Suspect]
     Active Substance: INTERFERON BETA-1A
     Indication: MULTIPLE SCLEROSIS
     Route: 058
     Dates: start: 2002

REACTIONS (15)
  - Nausea [Unknown]
  - Headache [Not Recovered/Not Resolved]
  - Abdominal discomfort [Not Recovered/Not Resolved]
  - Blood bilirubin abnormal [Not Recovered/Not Resolved]
  - Incorrect drug administration duration [Unknown]
  - Liver disorder [Unknown]
  - Feeling cold [Unknown]
  - Bone pain [Not Recovered/Not Resolved]
  - Fluid retention [Not Recovered/Not Resolved]
  - Tremor [Unknown]
  - Gamma-glutamyltransferase increased [Recovering/Resolving]
  - Blood pressure increased [Not Recovered/Not Resolved]
  - Drug hypersensitivity [Unknown]
  - Injection site pain [Not Recovered/Not Resolved]
  - Injection site nodule [Not Recovered/Not Resolved]

NARRATIVE: CASE EVENT DATE: 2002
